FAERS Safety Report 11169158 (Version 1)
Quarter: 2015Q2

REPORT INFORMATION
  Report Type: Spontaneous
  Country: FR (occurrence: FR)
  Receive Date: 20150605
  Receipt Date: 20150605
  Transmission Date: 20150821
  Serious: Yes (Other)
  Sender: FDA-Public Use
  Company Number: FR-ABBVIE-15P-056-1401101-00

PATIENT
  Age: 43 Year
  Sex: Female

DRUGS (3)
  1. PREZISTA [Suspect]
     Active Substance: DARUNAVIR ETHANOLATE
     Indication: EXPOSURE VIA BLOOD
     Route: 065
     Dates: start: 20150312, end: 20150322
  2. TRUVADA [Suspect]
     Active Substance: EMTRICITABINE\TENOFOVIR DISOPROXIL FUMARATE
     Indication: EXPOSURE VIA BLOOD
     Route: 048
     Dates: start: 20150312, end: 20150412
  3. NORVIR [Suspect]
     Active Substance: RITONAVIR
     Indication: EXPOSURE VIA BLOOD
     Route: 048
     Dates: start: 20150312, end: 20150322

REACTIONS (1)
  - Prurigo [Recovered/Resolved]

NARRATIVE: CASE EVENT DATE: 20150321
